FAERS Safety Report 7183699-9 (Version None)
Quarter: 2010Q4

REPORT INFORMATION
  Report Type: 
  Country: None (occurrence: None)
  Receive Date: 20101220
  Receipt Date: 20101220
  Transmission Date: 20110411
  Serious: Yes (Hospitalization)
  Sender: FDA-Public Use
  Company Number: None

PATIENT
  Age: 53 Year
  Sex: Female
  Weight: 96.3 kg

DRUGS (12)
  1. LOVENOX [Suspect]
     Indication: DEEP VEIN THROMBOSIS
     Dosage: 40 MG Q24HRS SQ RECENT
     Route: 058
  2. PRILOSEC [Concomitant]
  3. LIDOCAINE [Concomitant]
  4. ALLERGY SHOT [Concomitant]
  5. RITALIN [Concomitant]
  6. FEXOFENADINE HCL [Concomitant]
  7. FLUOXETINE [Concomitant]
  8. CLONIDINE [Concomitant]
  9. PRAVASTATIN [Concomitant]
  10. PERCOCET [Concomitant]
  11. CLEOCIN [Concomitant]
  12. PHENERGAN [Concomitant]

REACTIONS (2)
  - CEREBRAL HAEMORRHAGE [None]
  - MENTAL STATUS CHANGES [None]
